FAERS Safety Report 13703709 (Version 2)
Quarter: 2017Q3

REPORT INFORMATION
  Report Type: Spontaneous
  Country: US (occurrence: US)
  Receive Date: 20170629
  Receipt Date: 20170817
  Transmission Date: 20171127
  Serious: Yes (Hospitalization)
  Sender: FDA-Public Use
  Company Number: US-IMPAX LABORATORIES, INC-2017-IPXL-01039

PATIENT
  Age: 76 Year
  Sex: Female
  Weight: 66 kg

DRUGS (12)
  1. CARBIDOPA-LEVODOPA ER [Suspect]
     Active Substance: CARBIDOPA\LEVODOPA
     Indication: PARKINSON^S DISEASE
     Dosage: 25/100 MG 1 CAPSULE AT 6 AM, 8 AM, 10 AM, NOON, 2 PM, 4 PM, 6PM, 8 PM, AND 10 PM
     Route: 048
  2. LEVSIN [Concomitant]
     Active Substance: HYOSCYAMINE SULFATE
     Indication: TREMOR
  3. RYTARY [Suspect]
     Active Substance: CARBIDOPA\LEVODOPA
     Indication: PARKINSON^S DISEASE
     Dosage: 48.75/195 MG, 2 CAPSULES, 3 TIMES DAILY
     Route: 048
     Dates: start: 20170315, end: 2017
  4. RYTARY [Suspect]
     Active Substance: CARBIDOPA\LEVODOPA
     Dosage: 48.75/195 MG, 1 CAPSULE EVERY 4 HOURS
     Route: 048
     Dates: start: 201704
  5. MYRBETRIQ [Concomitant]
     Active Substance: MIRABEGRON
     Indication: BLADDER DISORDER
     Dosage: UNK
     Route: 065
  6. SINEMET [Suspect]
     Active Substance: CARBIDOPA\LEVODOPA
     Indication: PARKINSON^S DISEASE
     Dosage: 25/100 MG; 1 TABLET, EVERY 2HR (12 TIMES A DAY)
     Route: 048
  7. COREG [Concomitant]
     Active Substance: CARVEDILOL
     Indication: HYPERTENSION
     Dosage: 6.25 MG, AS NEEDED
     Route: 065
  8. ATIVAN [Concomitant]
     Active Substance: LORAZEPAM
     Indication: ANXIETY
     Dosage: 0.5 MG, AS NEEDED
     Route: 065
  9. LEVSIN [Concomitant]
     Active Substance: HYOSCYAMINE SULFATE
     Indication: MUSCLE SPASMS
     Dosage: 0.125 MG, AS NEEDED
     Route: 065
  10. RYTARY [Suspect]
     Active Substance: CARBIDOPA\LEVODOPA
     Dosage: 61.25/245 MG 2 CAPSULES AT 6AM, 10 AM, 2 PM, 6 PM AND 10 PM
     Route: 048
     Dates: start: 20170519
  11. PHILLIPS COLON HEALTH [Concomitant]
     Indication: PRODUCT USED FOR UNKNOWN INDICATION
     Dosage: UNK
     Route: 065
  12. RYTARY [Suspect]
     Active Substance: CARBIDOPA\LEVODOPA
     Dosage: 48.75/195 MG, TWO CAPSULES FOUR TIMES DAILY
     Route: 048
     Dates: start: 201705

REACTIONS (13)
  - Blood pressure decreased [Not Recovered/Not Resolved]
  - Diarrhoea [Not Recovered/Not Resolved]
  - Constipation [Not Recovered/Not Resolved]
  - Hospitalisation [Unknown]
  - Malaise [Unknown]
  - Pain [Unknown]
  - Urinary tract infection [Recovered/Resolved]
  - Anxiety [Unknown]
  - Product solubility abnormal [Not Recovered/Not Resolved]
  - Intentional product use issue [Unknown]
  - Dyspnoea [Unknown]
  - Abdominal discomfort [Recovered/Resolved]
  - Urinary retention [Unknown]

NARRATIVE: CASE EVENT DATE: 2017
